FAERS Safety Report 8509444-X (Version None)
Quarter: 2012Q3

REPORT INFORMATION
  Report Type: 
  Country: None (occurrence: None)
  Receive Date: 20120713
  Receipt Date: 20090601
  Transmission Date: 20120928
  Serious: Yes (Hospitalization)
  Sender: FDA-Public Use
  Company Number: ZA-ROCHE-1087695

PATIENT
  Sex: Female

DRUGS (5)
  1. CELLCEPT [Suspect]
     Indication: RENAL TRANSPLANT
     Route: 048
     Dates: start: 20090211, end: 20090301
  2. PREDNISONE [Concomitant]
  3. MYFORTIC [Concomitant]
     Dates: start: 20090301
  4. VALCYTE [Suspect]
     Indication: RENAL TRANSPLANT
     Route: 048
     Dates: end: 20090501
  5. TACROLIMUS [Suspect]
     Indication: PRODUCT USED FOR UNKNOWN INDICATION

REACTIONS (4)
  - URINARY TRACT INFECTION [None]
  - VOMITING [None]
  - TOXICITY TO VARIOUS AGENTS [None]
  - DIARRHOEA [None]
